FAERS Safety Report 5951755-6 (Version None)
Quarter: 2008Q4

REPORT INFORMATION
  Report Type: 
  Country: None (occurrence: None)
  Receive Date: 20081113
  Receipt Date: 20081031
  Transmission Date: 20090506
  Serious: Yes (Other)
  Sender: FDA-Public Use
  Company Number: JP-ROCHE-581161

PATIENT
  Sex: Female

DRUGS (2)
  1. DIAZEPAM [Suspect]
     Dosage: ROUTE: IJ. RECEIVED IN MORNING. FREQUENCY: QD
     Route: 065
     Dates: start: 20040124, end: 20040124
  2. DIAZEPAM [Suspect]
     Dosage: FREQUENCY: QD
     Route: 065
     Dates: start: 20050809, end: 20050809

REACTIONS (2)
  - DIARRHOEA [None]
  - VOMITING [None]
